FAERS Safety Report 6007982-5 (Version None)
Quarter: 2008Q4

REPORT INFORMATION
  Report Type: 
  Country: None (occurrence: None)
  Receive Date: 20081217
  Receipt Date: 20080623
  Transmission Date: 20090506
  Serious: No
  Sender: FDA-Public Use
  Company Number: US-ASTRAZENECA-2008UW12631

PATIENT
  Age: 42 Year
  Sex: Female
  Weight: 55.3 kg

DRUGS (4)
  1. CRESTOR [Suspect]
     Indication: BLOOD CHOLESTEROL INCREASED
     Route: 048
     Dates: start: 20080401
  2. METOPROLOL TARTRATE [Concomitant]
  3. MORPHINE [Concomitant]
  4. DILAUDID [Concomitant]

REACTIONS (4)
  - CONSTIPATION [None]
  - COUGH [None]
  - HEADACHE [None]
  - LUPUS ENTERITIS [None]
